FAERS Safety Report 23639405 (Version 1)
Quarter: 2024Q1

REPORT INFORMATION
  Report Type: Spontaneous
  Country: US (occurrence: US)
  Receive Date: 20240316
  Receipt Date: 20240316
  Transmission Date: 20240410
  Serious: Yes (Other)
  Sender: FDA-Public Use
  Company Number: US-GLENMARK PHARMACEUTICALS-2024GMK089341

PATIENT

DRUGS (7)
  1. TACROLIMUS [Suspect]
     Active Substance: TACROLIMUS
     Indication: Prophylaxis against graft versus host disease
     Dosage: UNK
     Route: 065
  2. AZACITIDINE [Concomitant]
     Active Substance: AZACITIDINE
     Indication: Prophylaxis
     Dosage: 36 MILLIGRAM PER SQUARE METRE, QD, IV OR SC ROUTE
     Route: 065
  3. FLUDARABINE [Concomitant]
     Active Substance: FLUDARABINE PHOSPHATE
     Indication: Surgical preconditioning
     Dosage: 30 MG/M2/DAY, ON DAYS -5 TO -2
     Route: 042
  4. VENETOCLAX [Concomitant]
     Active Substance: VENETOCLAX
     Indication: Surgical preconditioning
     Dosage: 400 MILLIGRAM ON DAYS 1 TO 14 PER ASSIGNED DOSE SCHEDULE/LEVEL (42-DAY CYCLES ? 8, OR 28-DAY CYCLES
     Route: 048
  5. VENETOCLAX [Concomitant]
     Active Substance: VENETOCLAX
     Indication: Prophylaxis
  6. BUSULFAN [Concomitant]
     Active Substance: BUSULFAN
     Indication: Surgical preconditioning
     Dosage: 0.8 MILLIGRAM/KILOGRAM, BID, (ON DAYS -5 TO -2)
     Route: 042
  7. METHOTREXATE [Concomitant]
     Active Substance: METHOTREXATE
     Indication: Prophylaxis against graft versus host disease
     Dosage: UNK
     Route: 065

REACTIONS (1)
  - Chronic graft versus host disease [Unknown]
